FAERS Safety Report 17628255 (Version 1)
Quarter: 2020Q2

REPORT INFORMATION
  Report Type: Spontaneous
  Country: GB (occurrence: GB)
  Receive Date: 20200406
  Receipt Date: 20200406
  Transmission Date: 20200713
  Serious: Yes (Other)
  Sender: FDA-Public Use
  Company Number: GB-TEVA-2020-GB-1218317

PATIENT
  Age: 30 Year
  Sex: Female

DRUGS (1)
  1. TRIMETHOPRIM. [Suspect]
     Active Substance: TRIMETHOPRIM
     Indication: GENITOURINARY TRACT INFECTION
     Route: 048
     Dates: start: 20200311, end: 20200312

REACTIONS (7)
  - Pyrexia [Unknown]
  - Photophobia [Unknown]
  - Headache [Unknown]
  - Iridocyclitis [Unknown]
  - Pain [Unknown]
  - Eye pain [Unknown]
  - Constipation [Unknown]

NARRATIVE: CASE EVENT DATE: 20200310
